FAERS Safety Report 14202930 (Version 1)
Quarter: 2017Q4

REPORT INFORMATION
  Report Type: Spontaneous
  Country: US (occurrence: None)
  Receive Date: 20171116
  Receipt Date: 20171116
  Transmission Date: 20180321
  Serious: Yes (Hospitalization, Other)
  Sender: FDA-Public Use
  Company Number: None

PATIENT
  Age: 37 Year
  Sex: Female
  Weight: 95.91 kg

DRUGS (2)
  1. VANCOMYCIN 1GM FRESENIUS KABI [Suspect]
     Active Substance: VANCOMYCIN HYDROCHLORIDE
     Indication: CELLULITIS
     Route: 042
     Dates: start: 20171017, end: 20171111
  2. VANCOMYCIN 10GM FRESENIUS KABI [Suspect]
     Active Substance: VANCOMYCIN
     Indication: CELLULITIS
     Route: 042
     Dates: start: 20171017, end: 20171111

REACTIONS (2)
  - Therapy change [None]
  - Rash generalised [None]

NARRATIVE: CASE EVENT DATE: 20171111
